FAERS Safety Report 5080030-X (Version None)
Quarter: 2006Q3

REPORT INFORMATION
  Report Type: 
  Country: None (occurrence: None)
  Receive Date: 20060809
  Receipt Date: 20060608
  Transmission Date: 20061208
  Serious: Yes (Life-Threatening, Hospitalization, Other)
  Sender: FDA-Public Use
  Company Number: 601#1#2006-00001

PATIENT
  Age: 48 Year
  Sex: Male

DRUGS (2)
  1. ALPROSTADIL [Suspect]
     Indication: LERICHE SYNDROME
     Dosage: 60 MCG (20 MCG 3 IN 3 HOUR (S)) INTRAVENOUS
     Route: 042
     Dates: start: 20060410, end: 20060412
  2. PENTOXIFYLLINE [Concomitant]

REACTIONS (6)
  - BODY TEMPERATURE INCREASED [None]
  - BRONCHOPLEURAL FISTULA [None]
  - DIFFUSE VASCULITIS [None]
  - LUNG ABSCESS [None]
  - LUNG INFILTRATION [None]
  - RENAL FAILURE ACUTE [None]
